FAERS Safety Report 18518519 (Version 1)
Quarter: 2020Q4

REPORT INFORMATION
  Report Type: Report from Study
  Country: BR (occurrence: BR)
  Receive Date: 20201118
  Receipt Date: 20201118
  Transmission Date: 20210114
  Serious: Yes (Other)
  Sender: FDA-Public Use
  Company Number: NVSC2020BR305978

PATIENT
  Age: 60 Year
  Sex: Female

DRUGS (2)
  1. GLAUTIMOL [Suspect]
     Active Substance: TIMOLOL MALEATE
     Indication: PRODUCT USED FOR UNKNOWN INDICATION
     Dosage: 5 ML (10 YEARS AGO)
     Route: 065
  2. AZORGA [Suspect]
     Active Substance: BRINZOLAMIDE\TIMOLOL MALEATE
     Indication: PRODUCT USED FOR UNKNOWN INDICATION
     Dosage: 6 ML (10 YEARS AGO)
     Route: 065

REACTIONS (4)
  - Visual field defect [Unknown]
  - Open angle glaucoma [Unknown]
  - Blindness [Unknown]
  - Drug ineffective [Unknown]

NARRATIVE: CASE EVENT DATE: 201907
